FAERS Safety Report 14154927 (Version 5)
Quarter: 2018Q1

REPORT INFORMATION
  Report Type: Report from Study
  Country: GB (occurrence: GB)
  Receive Date: 20171102
  Receipt Date: 20180201
  Transmission Date: 20180508
  Serious: Yes (Hospitalization)
  Sender: FDA-Public Use
  Company Number: GB-B.I. PHARMACEUTICALS,INC./RIDGEFIELD-2017-BI-054501

PATIENT
  Age: 65 Year
  Sex: Male
  Weight: 116 kg

DRUGS (11)
  1. ONDANSETRON [Concomitant]
     Active Substance: ONDANSETRON
     Indication: NAUSEA
     Dosage: DAILY DOSE: 4-8 MG AS NEEDED
     Route: 042
     Dates: start: 20180112
  2. ONDANSETRON [Concomitant]
     Active Substance: ONDANSETRON
     Indication: VOMITING
  3. CISPLATIN. [Suspect]
     Active Substance: CISPLATIN
     Indication: BLADDER CANCER
     Dosage: DOSE: 35MG/M2 (DOSAGE INTERVAL 7 DAYS)
     Route: 042
     Dates: start: 20170725, end: 20170905
  4. GABAPENTIN. [Concomitant]
     Active Substance: GABAPENTIN
     Indication: NEURALGIA
     Route: 048
     Dates: start: 20170912
  5. GEMCITABINE [Suspect]
     Active Substance: GEMCITABINE\GEMCITABINE HYDROCHLORIDE
     Indication: BLADDER CANCER
     Dosage: DOSE: 1000MG/M2 (DOSAGE INTERVAL 7 DAYS)
     Route: 042
     Dates: start: 20170725, end: 20170905
  6. MEBEVERINE [Concomitant]
     Active Substance: MEBEVERINE
     Indication: IRRITABLE BOWEL SYNDROME
     Route: 048
     Dates: start: 2016
  7. CLEXANE [Concomitant]
     Active Substance: ENOXAPARIN SODIUM
     Indication: ARTERIAL OCCLUSIVE DISEASE
     Route: 058
     Dates: start: 20180112
  8. BACLOFEN. [Concomitant]
     Active Substance: BACLOFEN
     Indication: MUSCLE RELAXANT THERAPY
     Route: 048
     Dates: start: 20171026
  9. OXYCODONE [Concomitant]
     Active Substance: OXYCODONE
     Indication: ANALGESIC THERAPY
     Route: 048
     Dates: start: 20171026
  10. ORAMORPH [Concomitant]
     Active Substance: MORPHINE SULFATE
     Indication: ANALGESIC THERAPY
     Dosage: DAILY DOSE: 10-20 MG AS NEEDED
     Route: 048
     Dates: start: 20180112
  11. BIBF 1120 [Suspect]
     Active Substance: NINTEDANIB
     Indication: BLADDER CANCER
     Route: 048
     Dates: start: 20170725, end: 20170926

REACTIONS (3)
  - Cellulitis [Not Recovered/Not Resolved]
  - Peripheral artery occlusion [Not Recovered/Not Resolved]
  - Postoperative wound infection [Not Recovered/Not Resolved]

NARRATIVE: CASE EVENT DATE: 20170911
